FAERS Safety Report 12548488 (Version 1)
Quarter: 2016Q3

REPORT INFORMATION
  Report Type: Spontaneous
  Country: CZ (occurrence: CZ)
  Receive Date: 20160712
  Receipt Date: 20160712
  Transmission Date: 20161109
  Serious: Yes (Other)
  Sender: FDA-Public Use
  Company Number: CZ-ACTAVIS-2016-15169

PATIENT
  Age: 45 Year
  Sex: Female

DRUGS (11)
  1. CAPECITABINE (UNKNOWN) [Suspect]
     Active Substance: CAPECITABINE
     Dosage: UNK
     Route: 048
     Dates: start: 201205, end: 201209
  2. FEMARA [Suspect]
     Active Substance: LETROZOLE
     Indication: INVASIVE DUCTAL BREAST CARCINOMA
     Dosage: UNK
     Route: 065
     Dates: start: 201104, end: 201108
  3. ANASTROZOLE. [Concomitant]
     Active Substance: ANASTROZOLE
     Indication: INVASIVE DUCTAL BREAST CARCINOMA
     Dosage: UNK
     Route: 065
     Dates: start: 201108, end: 201109
  4. AVASTIN [Concomitant]
     Active Substance: BEVACIZUMAB
     Dosage: 15 MG/KG, 1/ THREE WEEKS
     Route: 065
     Dates: start: 201203, end: 201303
  5. TAMOXIFEN [Concomitant]
     Active Substance: TAMOXIFEN
     Indication: INVASIVE DUCTAL BREAST CARCINOMA
     Dosage: UNK
     Route: 065
     Dates: start: 201204, end: 201210
  6. PACLITAXEL (UNKNOWN) [Suspect]
     Active Substance: PACLITAXEL
     Indication: INVASIVE DUCTAL BREAST CARCINOMA
     Dosage: UNK UNK, 1/WEEK
     Route: 065
     Dates: start: 201008, end: 201103
  7. ZOMETA [Concomitant]
     Active Substance: ZOLEDRONIC ACID
     Indication: PRODUCT USED FOR UNKNOWN INDICATION
     Dosage: UNK UNK, ONCE A MONTH
     Route: 042
     Dates: start: 201203, end: 201301
  8. AVASTIN [Concomitant]
     Active Substance: BEVACIZUMAB
     Indication: INVASIVE DUCTAL BREAST CARCINOMA
     Dosage: 10 MG/KG, 1/TWO WEEKS
     Route: 065
     Dates: start: 201010, end: 201203
  9. BONDRONAT                          /01304701/ [Concomitant]
     Active Substance: IBANDRONIC ACID
     Indication: PRODUCT USED FOR UNKNOWN INDICATION
     Dosage: UNK UNK, CYCLICAL
     Route: 042
     Dates: start: 201008, end: 201203
  10. FASLODEX [Concomitant]
     Active Substance: FULVESTRANT
     Indication: INVASIVE DUCTAL BREAST CARCINOMA
     Dosage: 500 MG, ONCE A MONTH
     Route: 058
     Dates: start: 201109, end: 201203
  11. CAPECITABINE (UNKNOWN) [Suspect]
     Active Substance: CAPECITABINE
     Indication: PRODUCT USED FOR UNKNOWN INDICATION
     Dosage: UNK
     Route: 048
     Dates: start: 201204, end: 201205

REACTIONS (2)
  - Palmar-plantar erythrodysaesthesia syndrome [Unknown]
  - Neurotoxicity [Unknown]

NARRATIVE: CASE EVENT DATE: 201205
